FAERS Safety Report 9007032 (Version 1)
Quarter: 2013Q1

REPORT INFORMATION
  Report Type: Spontaneous
  Country: US (occurrence: US)
  Receive Date: 20130110
  Receipt Date: 20130110
  Transmission Date: 20140127
  Serious: Yes (Other)
  Sender: FDA-Public Use
  Company Number: US-JNJFOC-20130103189

PATIENT
  Age: 54 None
  Sex: Male
  Weight: 82.56 kg

DRUGS (1)
  1. ZYTIGA [Suspect]
     Indication: PROSTATE CANCER METASTATIC
     Dosage: 250 X 4 MG
     Route: 048
     Dates: start: 201209

REACTIONS (4)
  - Metastases to bone [Unknown]
  - Influenza like illness [Unknown]
  - Drug dose omission [Unknown]
  - Product packaging quantity issue [Unknown]
